FAERS Safety Report 12621479 (Version 1)
Quarter: 2016Q3

REPORT INFORMATION
  Report Type: Spontaneous
  Country: US (occurrence: None)
  Receive Date: 20160803
  Receipt Date: 20160803
  Transmission Date: 20161109
  Serious: No
  Sender: FDA-Public Use
  Company Number: None

PATIENT
  Age: 87 Year
  Sex: Female

DRUGS (13)
  1. ANTIPYRINE AND BENZOCAINE OTIC [Suspect]
     Active Substance: ANTIPYRINE\BENZOCAINE
     Indication: EAR PAIN
     Dosage: 2 TO 3 DROPS AS NEEDED EAR
     Dates: start: 20150817
  2. BACLOFEN. [Concomitant]
     Active Substance: BACLOFEN
  3. FLUCONAZONE/PROPIONATE [Concomitant]
  4. CLONIDINE PATCH [Concomitant]
     Active Substance: CLONIDINE
  5. MELATONIN [Concomitant]
     Active Substance: MELATONIN
  6. DIPHENOXYLATE/ATROPINE [Concomitant]
     Active Substance: ATROPINE\DIPHENOXYLATE
  7. ADVIL [Concomitant]
     Active Substance: IBUPROFEN
  8. LATANOPROST. [Concomitant]
     Active Substance: LATANOPROST
  9. VITAMIN D3 [Concomitant]
     Active Substance: CHOLECALCIFEROL
  10. TYLENOL [Concomitant]
     Active Substance: ACETAMINOPHEN
  11. B12 SHOTS [Concomitant]
     Active Substance: CYANOCOBALAMIN
  12. HYLAND LEG CRAMPS [Concomitant]
  13. BIOFREEZE [Concomitant]
     Active Substance: MENTHOL

REACTIONS (2)
  - Ear discomfort [None]
  - Deafness [None]
